FAERS Safety Report 13369041 (Version 1)
Quarter: 2017Q1

REPORT INFORMATION
  Report Type: Spontaneous
  Country: US (occurrence: US)
  Receive Date: 20170324
  Receipt Date: 20170324
  Transmission Date: 20170429
  Serious: Yes (Other)
  Sender: FDA-Public Use
  Company Number: US-BRISTOL-MYERS SQUIBB COMPANY-BMS-2017-023469

PATIENT
  Sex: Male

DRUGS (3)
  1. NITROSPRAY [Concomitant]
     Indication: ANGINA PECTORIS
     Route: 065
  2. MULTAQ [Concomitant]
     Active Substance: DRONEDARONE
     Indication: ATRIAL FIBRILLATION
     Dosage: 400 MG, UNK
     Route: 065
  3. ELIQUIS [Suspect]
     Active Substance: APIXABAN
     Indication: CEREBROVASCULAR ACCIDENT PROPHYLAXIS
     Dosage: 5 MG, BID
     Route: 048
     Dates: start: 20160204

REACTIONS (7)
  - Peripheral swelling [Unknown]
  - Dyspnoea [Unknown]
  - Chest pain [Unknown]
  - Fatigue [Unknown]
  - Abdominal distension [Unknown]
  - Rash pruritic [Unknown]
  - Nausea [Unknown]
